FAERS Safety Report 15276668 (Version 1)
Quarter: 2018Q3

REPORT INFORMATION
  Report Type: Spontaneous
  Country: US (occurrence: US)
  Receive Date: 20180729
  Receipt Date: 20180729
  Transmission Date: 20181010
  Serious: Yes (Other)
  Sender: FDA-Public Use
  Company Number: None

PATIENT
  Age: 39 Year
  Sex: Male
  Weight: 78.75 kg

DRUGS (6)
  1. PROPECIA [Concomitant]
     Active Substance: FINASTERIDE
  2. SUDAFED [Concomitant]
     Active Substance: PSEUDOEPHEDRINE HYDROCHLORIDE
  3. DESMOPRESSIN ACETATE NASAL SPRAY SOLUTION, 10 MCG/0.1 ML [Suspect]
     Active Substance: DESMOPRESSIN ACETATE
     Indication: DIABETES INSIPIDUS
     Dosage: ?          QUANTITY:50 SPRAY(S);?
     Route: 055
     Dates: start: 20180721, end: 20180728
  4. ZOLOFT [Concomitant]
     Active Substance: SERTRALINE HYDROCHLORIDE
  5. SINGULAIR [Concomitant]
     Active Substance: MONTELUKAST SODIUM
  6. ZYRTEC [Concomitant]
     Active Substance: CETIRIZINE HYDROCHLORIDE

REACTIONS (6)
  - Urine output increased [None]
  - Product substitution issue [None]
  - Drug effect decreased [None]
  - Thirst [None]
  - Insomnia [None]
  - Polydipsia [None]

NARRATIVE: CASE EVENT DATE: 20180729
